FAERS Safety Report 16658611 (Version 1)
Quarter: 2019Q3

REPORT INFORMATION
  Report Type: Report from Study
  Country: US (occurrence: US)
  Receive Date: 20190801
  Receipt Date: 20190801
  Transmission Date: 20191004
  Serious: Yes (Hospitalization)
  Sender: FDA-Public Use
  Company Number: US-PFIZER INC-2019326760

PATIENT
  Age: 2 Year
  Sex: Female
  Weight: 12.6 kg

DRUGS (6)
  1. VENETOCLAX. [Suspect]
     Active Substance: VENETOCLAX
     Dosage: 250 MG, 1 IN 1 D
     Route: 048
     Dates: start: 20190522
  2. CYTARABINE. [Suspect]
     Active Substance: CYTARABINE
     Indication: NEOPLASM MALIGNANT
     Dosage: 1000 MG/M2, 2 IN 1 D
     Route: 042
     Dates: start: 20190514, end: 20190719
  3. PEGASPARAGINASE [Suspect]
     Active Substance: PEGASPARGASE
     Indication: NEOPLASM MALIGNANT
     Dosage: 2500 IU/M2, 1 IN 2 WK
     Route: 042
     Dates: start: 20190524, end: 20190524
  4. VINCRISTINE SULFATE. [Suspect]
     Active Substance: VINCRISTINE SULFATE
     Indication: NEOPLASM MALIGNANT
     Dosage: INJECTION, 2 MG/M2, 1 IN 1 D
     Route: 042
     Dates: start: 20190523, end: 20190530
  5. VENETOCLAX. [Suspect]
     Active Substance: VENETOCLAX
     Indication: NEOPLASM MALIGNANT
     Dosage: 50 MG, 1 IN 1 D
     Route: 048
     Dates: start: 20190520, end: 20190520
  6. VENETOCLAX. [Suspect]
     Active Substance: VENETOCLAX
     Dosage: 120 MG, 1 IN 1 D
     Route: 048
     Dates: start: 20190521, end: 20190521

REACTIONS (1)
  - Febrile neutropenia [Recovered/Resolved]

NARRATIVE: CASE EVENT DATE: 20190619
